FAERS Safety Report 19002966 (Version 2)
Quarter: 2021Q1

REPORT INFORMATION
  Report Type: Spontaneous
  Country: IT (occurrence: IT)
  Receive Date: 20210312
  Receipt Date: 20210315
  Transmission Date: 20210420
  Serious: Yes (Other)
  Sender: FDA-Public Use
  Company Number: IT-INCYTE CORPORATION-2021IN002132

PATIENT

DRUGS (1)
  1. JAKAVI [Suspect]
     Active Substance: RUXOLITINIB
     Indication: PRODUCT USED FOR UNKNOWN INDICATION
     Dosage: 15 MG, BID
     Route: 065

REACTIONS (8)
  - Bone marrow failure [Unknown]
  - Fibrosis [Unknown]
  - Weight decreased [Unknown]
  - Hyperhidrosis [Unknown]
  - Haemoglobin decreased [Unknown]
  - Disease progression [Unknown]
  - Cytogenetic abnormality [Unknown]
  - White blood cell count increased [Unknown]
